FAERS Safety Report 18923398 (Version 1)
Quarter: 2021Q1

REPORT INFORMATION
  Report Type: Spontaneous
  Country: AU (occurrence: AU)
  Receive Date: 20210222
  Receipt Date: 20210222
  Transmission Date: 20210420
  Serious: Yes (Other)
  Sender: FDA-Public Use
  Company Number: AU-MYLANLABS-2021M1009597

PATIENT
  Sex: Male

DRUGS (2)
  1. PHYSIOTENS 0,2 MG [Suspect]
     Active Substance: MOXONIDINE
     Indication: PRODUCT USED FOR UNKNOWN INDICATION
     Dosage: 0.2 MILLIGRAM, BID
  2. NORDIP [Suspect]
     Active Substance: AMLODIPINE BESYLATE
     Indication: PRODUCT USED FOR UNKNOWN INDICATION
     Dosage: 10 MILLIGRAM, QD

REACTIONS (1)
  - Erectile dysfunction [Recovering/Resolving]
